FAERS Safety Report 9713638 (Version 4)
Quarter: 2014Q1

REPORT INFORMATION
  Report Type: Report from Study
  Country: IT (occurrence: IT)
  Receive Date: 20131126
  Receipt Date: 20140306
  Transmission Date: 20141002
  Serious: Yes (Death)
  Sender: FDA-Public Use
  Company Number: IT-PFIZER INC-2013334650

PATIENT
  Age: 62 Year
  Sex: Female
  Weight: 54 kg

DRUGS (12)
  1. IRINOTECAN HCL [Suspect]
     Indication: COLORECTAL CANCER METASTATIC
     Dosage: 180 MG/M2, ON DAY ONE EVERY 14 DAYS
     Route: 042
     Dates: start: 20130814
  2. 5-FU [Suspect]
     Indication: COLORECTAL CANCER METASTATIC
     Dosage: 400 MG/M2, ON DAY ONE EVERY 14 DAYS FOLLOWED
     Route: 040
     Dates: start: 20130814
  3. 5-FU [Suspect]
     Dosage: 2400 MG/M2, ON DAYS ONE AND TWO
     Route: 042
     Dates: start: 20130814
  4. FOLINIC ACID [Suspect]
     Indication: COLORECTAL CANCER METASTATIC
     Dosage: 400 MG/M2, ON DAY ONE EVERY 14 DAYS
     Route: 042
     Dates: start: 20130814
  5. BLINDED THERAPY [Suspect]
     Indication: COLORECTAL CANCER METASTATIC
     Dosage: UNK
     Route: 042
     Dates: start: 20130814
  6. LEVOPRAID [Concomitant]
     Indication: NAUSEA
     Dosage: UNK
     Dates: start: 20131015, end: 20131113
  7. LEVOPRAID [Concomitant]
     Indication: VOMITING
  8. SOLDESAM [Concomitant]
     Indication: PALLIATIVE CARE
     Dosage: UNK
     Dates: start: 20131015, end: 20131113
  9. SOLDESAM [Concomitant]
     Indication: NAUSEA
  10. PARACETAMOL [Concomitant]
     Indication: PAIN
     Dosage: UNK
     Dates: start: 20131015, end: 20131113
  11. FENTANYL [Concomitant]
     Indication: PAIN
     Dosage: UNK
     Dates: start: 20131016, end: 20131114
  12. METOCLOPRAMIDE [Concomitant]
     Indication: NAUSEA
     Dosage: IF NEEDED
     Dates: start: 20131001, end: 20131113

REACTIONS (2)
  - Coma [Fatal]
  - Cachexia [Fatal]
